FAERS Safety Report 8337489-1 (Version None)
Quarter: 2012Q2

REPORT INFORMATION
  Report Type: 
  Country: None (occurrence: None)
  Receive Date: 20120504
  Receipt Date: 20111212
  Transmission Date: 20120825
  Serious: Yes (Hospitalization)
  Sender: FDA-Public Use
  Company Number: FR-ROCHE-1021460

PATIENT
  Age: 61 Year
  Sex: Male

DRUGS (8)
  1. MABTHERA [Suspect]
     Indication: CHRONIC LYMPHOCYTIC LEUKAEMIA
     Route: 042
     Dates: start: 20091203, end: 20091203
  2. BENDAMUSTINE [Suspect]
     Indication: CHRONIC LYMPHOCYTIC LEUKAEMIA
     Route: 042
     Dates: start: 20091203, end: 20091203
  3. BENDAMUSTINE [Suspect]
     Dates: end: 20100601
  4. MABTHERA [Suspect]
     Dosage: REINTRODUCED
  5. MABTHERA [Suspect]
     Dates: end: 20100601
  6. BENDAMUSTINE [Suspect]
     Dosage: REINTRODUCED
  7. BACTRIM [Concomitant]
  8. VALACYCLOVIR HYDROCHLORIDE [Concomitant]

REACTIONS (4)
  - ASPERGILLOSIS [None]
  - URTICARIA [None]
  - DRUG ERUPTION [None]
  - BONE MARROW FAILURE [None]
